FAERS Safety Report 4562258-8 (Version None)
Quarter: 2005Q1

REPORT INFORMATION
  Report Type: 
  Country: None (occurrence: None)
  Receive Date: 20050127
  Receipt Date: 20050106
  Transmission Date: 20050727
  Serious: Yes (Disabling)
  Sender: FDA-Public Use
  Company Number: PHEH2005US00597

PATIENT
  Age: 66 Year
  Sex: Male

DRUGS (5)
  1. FLOMAX [Concomitant]
     Dosage: 0.4 MG, QD
  2. TOPROL-XL [Concomitant]
     Dosage: 50 MG, QD
     Route: 048
  3. ALDACTAZIDE [Concomitant]
  4. DIFLUCAN [Concomitant]
     Dosage: 500 MG, QD
     Route: 048
  5. GLEEVEC [Suspect]
     Indication: GASTROINTESTINAL STROMAL TUMOUR
     Dosage: 400 MG, BID
     Route: 048
     Dates: start: 20040901

REACTIONS (4)
  - DEAFNESS NEUROSENSORY [None]
  - DEAFNESS UNILATERAL [None]
  - DIZZINESS [None]
  - EAR DISCOMFORT [None]
